FAERS Safety Report 4377610-3 (Version None)
Quarter: 2004Q2

REPORT INFORMATION
  Report Type: 
  Country: None (occurrence: None)
  Receive Date: 20040615
  Receipt Date: 20040316
  Transmission Date: 20050107
  Serious: Yes (Other)
  Sender: FDA-Public Use
  Company Number: HK-GLAXOSMITHKLINE-B0327046A

PATIENT
  Age: 70 Year
  Sex: Female

DRUGS (9)
  1. SEROXAT [Suspect]
     Dosage: 40MG PER DAY
     Route: 048
     Dates: end: 20040220
  2. INDERAL [Concomitant]
     Dosage: 40MG TWICE PER DAY
  3. ATENOLOL [Concomitant]
     Dosage: 100MG IN THE MORNING
  4. DOMAR [Concomitant]
  5. APROVEL [Concomitant]
     Dosage: 150MG PER DAY
  6. IMIPRAMINE [Concomitant]
     Dosage: 25MG AT NIGHT
  7. LOSEC [Concomitant]
     Dosage: 20MG TWICE PER DAY
  8. UNKNOWN DRUG [Concomitant]
  9. METFORMIN HCL [Concomitant]
     Dosage: 500MG TWICE PER DAY

REACTIONS (4)
  - GAIT DISTURBANCE [None]
  - INCONTINENCE [None]
  - MUSCLE SPASMS [None]
  - TARDIVE DYSKINESIA [None]
